FAERS Safety Report 13383621 (Version 1)
Quarter: 2017Q1

REPORT INFORMATION
  Report Type: Spontaneous
  Country: US (occurrence: US)
  Receive Date: 20170329
  Receipt Date: 20170329
  Transmission Date: 20170429
  Serious: Yes (Hospitalization, Other)
  Sender: FDA-Public Use
  Company Number: US-PFIZER INC-2016571532

PATIENT
  Age: 26 Year
  Sex: Female

DRUGS (1)
  1. PHENYTOIN. [Suspect]
     Active Substance: PHENYTOIN
     Indication: EPILEPSY
     Dosage: 100 MG, 3X/DAY

REACTIONS (4)
  - Anticonvulsant drug level increased [Unknown]
  - Toxicity to various agents [Unknown]
  - Seizure [Unknown]
  - Condition aggravated [Unknown]
